FAERS Safety Report 9579418 (Version 2)
Quarter: 2013Q4

REPORT INFORMATION
  Report Type: Spontaneous
  Country: US (occurrence: US)
  Receive Date: 20131001
  Receipt Date: 20131001
  Transmission Date: 20140711
  Serious: No
  Sender: FDA-Public Use
  Company Number: US-AMGEN-USASP2013016246

PATIENT
  Age: 56 Year
  Sex: Female
  Weight: 82.54 kg

DRUGS (4)
  1. ENBREL [Suspect]
     Indication: RHEUMATOID ARTHRITIS
     Dosage: 50 MG, QWK
     Route: 058
     Dates: start: 20130216
  2. METHOTREXATE [Concomitant]
     Indication: RHEUMATOID ARTHRITIS
     Dosage: UNK UNK, QWK
     Route: 048
  3. FOLIC ACID [Concomitant]
     Dosage: UNK
     Route: 048
  4. PREDNISONE [Concomitant]
     Indication: RHEUMATOID ARTHRITIS
     Dosage: UNK
     Route: 048

REACTIONS (5)
  - Dizziness [Unknown]
  - Injection site pruritus [Unknown]
  - Injection site erythema [Unknown]
  - Injection site swelling [Unknown]
  - Injection site reaction [Unknown]
